FAERS Safety Report 17878563 (Version 2)
Quarter: 2020Q3

REPORT INFORMATION
  Report Type: Spontaneous
  Country: US (occurrence: US)
  Receive Date: 20200610
  Receipt Date: 20200925
  Transmission Date: 20201103
  Serious: Yes (Hospitalization, Disabling, Other)
  Sender: FDA-Public Use
  Company Number: US-009507513-2006USA002171

PATIENT
  Age: 71 Year
  Sex: Female

DRUGS (1)
  1. ZOCOR [Suspect]
     Active Substance: SIMVASTATIN
     Route: 048

REACTIONS (2)
  - Necrotising myositis [Unknown]
  - Autoimmune myositis [Unknown]
